FAERS Safety Report 4448680-9 (Version None)
Quarter: 2004Q3

REPORT INFORMATION
  Report Type: 
  Country: None (occurrence: None)
  Receive Date: 20040909
  Receipt Date: 20040820
  Transmission Date: 20050211
  Serious: Yes (Hospitalization)
  Sender: FDA-Public Use
  Company Number: A06200400234

PATIENT
  Age: 35 Year
  Sex: Female

DRUGS (2)
  1. (RASBURICASE) POWDER 1.5 MG/ML [Suspect]
     Indication: HYPERURICAEMIA
     Dosage: 0.2 MG/KG ONCE  INTRAVENOUS DRIP
     Route: 041
  2. (RASBURICASE) POWDER 1.5 MG/ML [Suspect]
     Indication: PROPHYLAXIS
     Dosage: 0.2 MG/KG ONCE  INTRAVENOUS DRIP
     Route: 041

REACTIONS (8)
  - AGITATION [None]
  - BLOOD URIC ACID DECREASED [None]
  - CONFUSIONAL STATE [None]
  - DRUG TOXICITY [None]
  - MUSCLE SPASTICITY [None]
  - MUTISM [None]
  - MYOCLONUS [None]
  - NEUROTOXICITY [None]
